FAERS Safety Report 6282723-5 (Version None)
Quarter: 2009Q3

REPORT INFORMATION
  Report Type: 
  Country: None (occurrence: None)
  Receive Date: 20090722
  Receipt Date: 20090722
  Transmission Date: 20100115
  Serious: Yes (Hospitalization)
  Sender: FDA-Public Use
  Company Number: None

PATIENT
  Age: 66 Year
  Sex: Male
  Weight: 63.8 kg

DRUGS (1)
  1. SUCCINYLCHOLINE [Suspect]
     Indication: SURGERY
     Dates: start: 20090603, end: 20090603

REACTIONS (1)
  - RESPIRATORY DEPRESSION [None]
